FAERS Safety Report 12376446 (Version 1)
Quarter: 2016Q2

REPORT INFORMATION
  Report Type: Spontaneous
  Country: US (occurrence: US)
  Receive Date: 20160517
  Receipt Date: 20160517
  Transmission Date: 20160815
  Serious: No
  Sender: FDA-Public Use
  Company Number: US-TEIKOKU PHARMA USA-TPU2016-00054

PATIENT
  Sex: Male
  Weight: 83.99 kg

DRUGS (1)
  1. LIDODERM [Suspect]
     Active Substance: LIDOCAINE
     Indication: ARTHRALGIA
     Dosage: 1-2 PATCHES
     Route: 061

REACTIONS (1)
  - Therapeutic response unexpected [Not Recovered/Not Resolved]
